FAERS Safety Report 6739934-1 (Version None)
Quarter: 2010Q2

REPORT INFORMATION
  Report Type: 
  Country: None (occurrence: None)
  Receive Date: 20100525
  Receipt Date: 20100513
  Transmission Date: 20101027
  Serious: Yes (Hospitalization, Disabling)
  Sender: FDA-Public Use
  Company Number: BR-PFIZER INC-2010060336

PATIENT
  Sex: Female

DRUGS (1)
  1. ALDACTONE [Suspect]
     Indication: HYPERTENSION
     Dosage: 25 MG, TABLETS
     Route: 048

REACTIONS (1)
  - PULMONARY OEDEMA [None]
